FAERS Safety Report 10166599 (Version 1)
Quarter: 2014Q2

REPORT INFORMATION
  Report Type: Spontaneous
  Country: SE (occurrence: None)
  Receive Date: 20140508
  Receipt Date: 20140508
  Transmission Date: 20141212
  Serious: Yes (Hospitalization, Other)
  Sender: FDA-Public Use
  Company Number: 2014-001232

PATIENT
  Age: 23 Year
  Sex: Female

DRUGS (22)
  1. SARAFEM [Suspect]
     Indication: ANXIETY DISORDER
  2. STESOLID [Suspect]
     Indication: PRODUCT USED FOR UNKNOWN INDICATION
  3. OMEPRAZOLE [Suspect]
     Indication: PRODUCT USED FOR UNKNOWN INDICATION
  4. CETIRIZINE [Suspect]
     Indication: PRODUCT USED FOR UNKNOWN INDICATION
  5. TOPIRAMATE [Suspect]
     Indication: PRODUCT USED FOR UNKNOWN INDICATION
  6. SEROQUEL [Suspect]
     Indication: PRODUCT USED FOR UNKNOWN INDICATION
  7. ZYPREXA [Suspect]
     Indication: PRODUCT USED FOR UNKNOWN INDICATION
  8. CISORDINOL [Suspect]
     Indication: PRODUCT USED FOR UNKNOWN INDICATION
  9. LITHIONIT [Suspect]
     Indication: PRODUCT USED FOR UNKNOWN INDICATION
  10. OXASCAND [Suspect]
     Indication: PRODUCT USED FOR UNKNOWN INDICATION
  11. HEMINEVRIN [Suspect]
     Indication: PRODUCT USED FOR UNKNOWN INDICATION
  12. AKINETON [Suspect]
     Indication: PRODUCT USED FOR UNKNOWN INDICATION
  13. THERALEN [Suspect]
     Indication: PRODUCT USED FOR UNKNOWN INDICATION
  14. IMOVANE [Suspect]
     Indication: PRODUCT USED FOR UNKNOWN INDICATION
  15. PROPAVAN [Suspect]
     Indication: PRODUCT USED FOR UNKNOWN INDICATION
  16. SOBRIL [Suspect]
     Indication: PRODUCT USED FOR UNKNOWN INDICATION
  17. ERGENYL [Suspect]
     Indication: PRODUCT USED FOR UNKNOWN INDICATION
  18. INVEGA [Suspect]
     Indication: PRODUCT USED FOR UNKNOWN INDICATION
  19. NOZINAN [Suspect]
     Indication: PRODUCT USED FOR UNKNOWN INDICATION
  20. PARGITAN [Suspect]
     Indication: PRODUCT USED FOR UNKNOWN INDICATION
  21. QUETIAPINE [Suspect]
     Indication: PRODUCT USED FOR UNKNOWN INDICATION
  22. ATARAX [Suspect]
     Indication: PRODUCT USED FOR UNKNOWN INDICATION

REACTIONS (20)
  - Ovarian germ cell cancer stage II [None]
  - Weight increased [None]
  - Tremor [None]
  - Muscular weakness [None]
  - Agitation [None]
  - Dyspnoea [None]
  - Blood prolactin increased [None]
  - Palpitations [None]
  - Aggression [None]
  - Dyskinesia [None]
  - Hyperhidrosis [None]
  - Abdominal pain [None]
  - Dysuria [None]
  - Swelling [None]
  - Muscle spasms [None]
  - Breast enlargement [None]
  - Genital neoplasm malignant female [None]
  - Galactorrhoea [None]
  - Amenorrhoea [None]
  - Fatigue [None]
